FAERS Safety Report 4517958-2 (Version None)
Quarter: 2004Q4

REPORT INFORMATION
  Report Type: 
  Country: None (occurrence: None)
  Receive Date: 20041130
  Receipt Date: 20041109
  Transmission Date: 20050328
  Serious: Yes (Hospitalization, Other)
  Sender: FDA-Public Use
  Company Number: SGBI-2004-00427

PATIENT
  Age: 81 Year
  Sex: Male
  Weight: 72 kg

DRUGS (11)
  1. XAGRID(ANAGRELIDE HYDROCHLORIDE) CAPSULE [Suspect]
     Dosage: SEE IMAGE
     Dates: start: 20030303, end: 20030701
  2. XAGRID(ANAGRELIDE HYDROCHLORIDE) CAPSULE [Suspect]
     Dosage: SEE IMAGE
     Dates: start: 20031201, end: 20040205
  3. XAGRID(ANAGRELIDE HYDROCHLORIDE) CAPSULE [Suspect]
     Dosage: SEE IMAGE
     Dates: start: 20030806
  4. XAGRID(ANAGRELIDE HYDROCHLORIDE) CAPSULE [Suspect]
     Dosage: SEE IMAGE
     Dates: start: 20031006
  5. XAGRID(ANAGRELIDE HYDROCHLORIDE) CAPSULE [Suspect]
     Dosage: SEE IMAGE
     Dates: start: 20031204
  6. XAGRID(ANAGRELIDE HYDROCHLORIDE) CAPSULE [Suspect]
     Dosage: SEE IMAGE
     Dates: start: 20040213
  7. XAGRID(ANAGRELIDE HYDROCHLORIDE) CAPSULE [Suspect]
     Dosage: SEE IMAGE
     Dates: start: 20040524
  8. TORENTAL LP [Concomitant]
  9. ZOLPIDEM TARTRATE [Concomitant]
  10. PROCTOLOG (TRIMEBUTINE, RUSCOGENIN) [Concomitant]
  11. DOLIPRANE [Concomitant]

REACTIONS (12)
  - ANGINA UNSTABLE [None]
  - CARDIAC DISORDER [None]
  - CORONARY ARTERY INSUFFICIENCY [None]
  - CORONARY ARTERY RESTENOSIS [None]
  - CORONARY ARTERY STENOSIS [None]
  - DRY EYE [None]
  - LOOSE STOOLS [None]
  - MYOCARDIAL ISCHAEMIA [None]
  - NIGHT CRAMPS [None]
  - PLATELET COUNT INCREASED [None]
  - POST PROCEDURAL HAEMATOMA [None]
  - POST PROCEDURAL HAEMORRHAGE [None]
